FAERS Safety Report 14782830 (Version 1)
Quarter: 2018Q2

REPORT INFORMATION
  Report Type: Report from Study
  Country: TR (occurrence: TR)
  Receive Date: 20180420
  Receipt Date: 20180420
  Transmission Date: 20180711
  Serious: Yes (Life-Threatening, Other)
  Sender: FDA-Public Use
  Company Number: TR-MYLANLABS-2018M1024550

PATIENT
  Sex: Male

DRUGS (9)
  1. CARBOPLATIN. [Suspect]
     Active Substance: CARBOPLATIN
     Indication: TESTICULAR GERM CELL TUMOUR
     Dosage: 700 MG/M2
     Route: 065
  2. BLEOMYCIN [Suspect]
     Active Substance: BLEOMYCIN SULFATE
     Indication: TESTICULAR GERM CELL TUMOUR
     Dosage: 30 MG/DAY AT DAY 1, 8 AND 15; EVERY 21 DAYS FOR THREE CYCLES
     Route: 065
  3. CISPLATIN. [Suspect]
     Active Substance: CISPLATIN
     Indication: TESTICULAR GERM CELL TUMOUR
     Dosage: BEP REGIMEN: 20 MG/M2/DAY AT DAY 1-5; EVERY 21 DAYS FOR THREE CYCLES
     Route: 065
  4. ETOPOSIDE. [Suspect]
     Active Substance: ETOPOSIDE
     Dosage: 750 MG/M2 IN DAYS 1-3
     Route: 065
  5. MESNA. [Suspect]
     Active Substance: MESNA
     Indication: TESTICULAR GERM CELL TUMOUR
     Dosage: 1000 [UNIT NOT STATED] AT DAY 1-3; EVERY 12 DAYS FOR AT LEAST THREE CYCLES
     Route: 065
  6. PACLITAXEL. [Suspect]
     Active Substance: PACLITAXEL
     Indication: TESTICULAR GERM CELL TUMOUR
     Dosage: 175 MG/M2 /DAY AT DAY 1; EVERY 12 DAYS FOR AT LEAST THREE CYCLES
     Route: 065
  7. ETOPOSIDE. [Suspect]
     Active Substance: ETOPOSIDE
     Indication: TESTICULAR GERM CELL TUMOUR
     Dosage: BEP REGIMEN: 100 MG/M2 /DAY AT DAY 1-5; EVERY 21 DAYS FOR THREE CYCLES
     Route: 065
  8. CISPLATIN. [Suspect]
     Active Substance: CISPLATIN
     Dosage: TIP REGIMEN: 60 MG/M2 /DAY AT DAY 1; EVERY 12 DAYS FOR AT LEAST THREE CYCLES
     Route: 065
  9. IFOSFAMIDE. [Suspect]
     Active Substance: IFOSFAMIDE
     Indication: TESTICULAR GERM CELL TUMOUR
     Dosage: 1000 MG/M2 /DAY AT DAY 1-3; EVERY 12 DAYS FOR AT LEAST THREE CYCLES
     Route: 065

REACTIONS (1)
  - Mucosal inflammation [Unknown]
